FAERS Safety Report 25629834 (Version 2)
Quarter: 2025Q3

REPORT INFORMATION
  Report Type: Spontaneous
  Country: US (occurrence: US)
  Receive Date: 20250731
  Receipt Date: 20250806
  Transmission Date: 20251020
  Serious: No
  Sender: SANDOZ
  Company Number: US-SANDOZ-SDZ2025US054864

PATIENT
  Sex: Male

DRUGS (3)
  1. AZITHROMYCIN [Suspect]
     Active Substance: AZITHROMYCIN
     Indication: Product used for unknown indication
     Route: 065
  2. ETHAMBUTOL [Suspect]
     Active Substance: ETHAMBUTOL HYDROCHLORIDE
     Indication: Product used for unknown indication
     Route: 065
  3. RIFAMPIN [Suspect]
     Active Substance: RIFAMPIN
     Indication: Product used for unknown indication
     Route: 065

REACTIONS (1)
  - Drug interaction [Unknown]
